FAERS Safety Report 15457507 (Version 1)
Quarter: 2018Q4

REPORT INFORMATION
  Report Type: Spontaneous
  Country: IL (occurrence: IL)
  Receive Date: 20181003
  Receipt Date: 20181003
  Transmission Date: 20190204
  Serious: Yes (Hospitalization, Other)
  Sender: FDA-Public Use
  Company Number: IL-BAXTER-2018BAX021928

PATIENT
  Age: 70 Year
  Sex: Female

DRUGS (14)
  1. CALCIUM GLUCONATE. [Suspect]
     Active Substance: CALCIUM GLUCONATE
     Indication: PARENTERAL NUTRITION
     Route: 065
     Dates: start: 201809
  2. TRIOMEL PERIPHERAL 4 G/L NITROGEN 700 KCAL/L WITH ELECTROLYTES, EMULSI [Suspect]
     Active Substance: AMINO ACIDS\DEXTROSE\ELECTROLYTES NOS\SOYBEAN OIL
     Indication: PARENTERAL NUTRITION
     Dosage: 2 LITRE (L) SOLUTION (SOL)
     Route: 065
  3. POTASSIUM CHLORIDE. [Suspect]
     Active Substance: POTASSIUM CHLORIDE
     Indication: PARENTERAL NUTRITION
     Dosage: POTASSIUM CHLORIDE15% 500ML 29G
     Route: 065
     Dates: start: 201809
  4. MAGNESIUM SULFATE. [Suspect]
     Active Substance: MAGNESIUM SULFATE
     Indication: PARENTERAL NUTRITION
     Dosage: MAGNESIUM SULPHATE 50% W/V
     Route: 065
     Dates: start: 201809
  5. SYNTHAMIN [Suspect]
     Active Substance: AMINO ACIDS
     Indication: PARENTERAL NUTRITION
     Dosage: IMPORTED FROM UK, SYNTHAMIN 17, 10% WITHOUT ELECTROLYTES, 3000ML 29G
     Route: 065
     Dates: start: 201809
  6. SODIUM CHLORIDE. [Suspect]
     Active Substance: SODIUM CHLORIDE
     Indication: PARENTERAL NUTRITION
     Dosage: SODIUM CHLORIDE23.4%INJ.100ML29G
     Route: 065
     Dates: start: 201809
  7. GLUCOSE 50% W/V CONCENTRATE FOR SOLUTION FOR INFUSION [Suspect]
     Active Substance: DEXTROSE
     Indication: PARENTERAL NUTRITION
     Dosage: IMPORTED FROM UK, DEXTROSE 55% W/V
     Route: 065
     Dates: start: 201809
  8. STERILE WATER FOR INJECTION [Suspect]
     Active Substance: WATER
     Indication: PARENTERAL NUTRITION
     Dosage: IMPORTED FROM THE USA (MARION NC), WATER FOR INJECTION 3L
     Route: 065
     Dates: start: 201809
  9. CERNEVIT [Suspect]
     Active Substance: VITAMINS
     Dosage: CERNEVIT 5 ML; AS PART OF NEW TPN FORMULATION
     Route: 065
     Dates: start: 201809
  10. ADDAMEL [Suspect]
     Active Substance: ELECTROLYTES NOS\MINERALS\SORBITOL
     Indication: PARENTERAL NUTRITION
     Dosage: ADDAMEL 10 MILLILITRES (ML) SOLUTION (SOL)
     Route: 065
  11. SODIUM GLYCEROPHOSPHATE [Suspect]
     Active Substance: SODIUM GLYCEROPHOSPHATE
     Indication: PARENTERAL NUTRITION
     Dosage: SODIUM GLYCEROPHOSPHATE 21.6% W/V 500ML
     Route: 065
     Dates: start: 201809
  12. CLINOLEIC  20% [Suspect]
     Active Substance: OLIVE OIL\SOYBEAN OIL
     Indication: PARENTERAL NUTRITION
     Dosage: CLINOLEIC 20% 500ML MONOBAG
     Route: 065
     Dates: start: 201809
  13. CERNEVIT [Suspect]
     Active Substance: VITAMINS
     Indication: PARENTERAL NUTRITION
     Dosage: CERNEVIT MULTY VITAMIN 12-5 MILLILITRES (ML) POWDER (PWD)
     Route: 065
  14. ADDAMEL [Suspect]
     Active Substance: ELECTROLYTES NOS\MINERALS\SORBITOL
     Dosage: AS PART OF NEW TPN FORMULATION
     Route: 065
     Dates: start: 201809

REACTIONS (8)
  - Urine output decreased [Unknown]
  - Breast cancer metastatic [Unknown]
  - Haematochezia [Recovered/Resolved]
  - Diarrhoea [Recovered/Resolved]
  - Malaise [Unknown]
  - Feeding disorder [Unknown]
  - Defaecation disorder [Unknown]
  - Abdominal pain [Unknown]

NARRATIVE: CASE EVENT DATE: 201808
